FAERS Safety Report 23495849 (Version 1)
Quarter: 2024Q1

REPORT INFORMATION
  Report Type: Spontaneous
  Country: US (occurrence: None)
  Receive Date: 20240206
  Receipt Date: 20240206
  Transmission Date: 20240410
  Serious: Yes (Death)
  Sender: FDA-Public Use
  Company Number: None

PATIENT
  Age: 34 Year
  Sex: Male

DRUGS (1)
  1. TIANEPTINE [Suspect]
     Active Substance: TIANEPTINE

REACTIONS (4)
  - Cardiac arrest [None]
  - Nausea [None]
  - Diarrhoea [None]
  - Withdrawal syndrome [None]

NARRATIVE: CASE EVENT DATE: 20240202
